FAERS Safety Report 8171055-6 (Version None)
Quarter: 2012Q1

REPORT INFORMATION
  Report Type: 
  Country: None (occurrence: None)
  Receive Date: 20120228
  Receipt Date: 20120217
  Transmission Date: 20120608
  Serious: Yes (Other)
  Sender: FDA-Public Use
  Company Number: PHFR2011GB05013

PATIENT
  Sex: Female

DRUGS (3)
  1. CLOZARIL [Suspect]
     Dates: start: 20110613
  2. CLOZARIL [Suspect]
     Indication: SCHIZOPHRENIA
     Dosage: 400 MG, DAILY
     Route: 048
     Dates: start: 20110618
  3. HYOSCINE [Concomitant]
     Indication: SALIVARY HYPERSECRETION
     Dates: start: 20110618

REACTIONS (7)
  - WEIGHT DECREASED [None]
  - HAEMATOCRIT DECREASED [None]
  - WHITE BLOOD CELL COUNT INCREASED [None]
  - LYMPHOCYTE COUNT DECREASED [None]
  - BLOOD ALBUMIN DECREASED [None]
  - BLOOD ALKALINE PHOSPHATASE INCREASED [None]
  - NEUTROPHIL COUNT INCREASED [None]
